FAERS Safety Report 16627547 (Version 2)
Quarter: 2019Q3

REPORT INFORMATION
  Report Type: Spontaneous
  Country: JP (occurrence: JP)
  Receive Date: 20190724
  Receipt Date: 20190726
  Transmission Date: 20191004
  Serious: Yes (Death)
  Sender: FDA-Public Use
  Company Number: JP-JNJFOC-20190719440

PATIENT
  Age: 4 Decade
  Sex: Male

DRUGS (3)
  1. BELSOMRA [Concomitant]
     Active Substance: SUVOREXANT
     Dosage: UNKNOWN
     Route: 048
  2. XEPLION [Suspect]
     Active Substance: PALIPERIDONE PALMITATE
     Indication: SCHIZOPHRENIA
     Dosage: UNKNOWN
     Route: 030
     Dates: start: 2019, end: 2019
  3. XEPLION [Suspect]
     Active Substance: PALIPERIDONE PALMITATE
     Route: 030
     Dates: start: 2019, end: 2019

REACTIONS (2)
  - Death [Fatal]
  - Depressive symptom [Unknown]

NARRATIVE: CASE EVENT DATE: 2019
